FAERS Safety Report 8792869 (Version 2)
Quarter: 2012Q4

REPORT INFORMATION
  Report Type: Report from Study
  Country: JP (occurrence: JP)
  Receive Date: 20120918
  Receipt Date: 20121113
  Transmission Date: 20130627
  Serious: Yes (Hospitalization, Other)
  Sender: FDA-Public Use
  Company Number: JP-JNJFOC-20120906833

PATIENT
  Age: 47 Year
  Sex: Male
  Weight: 57 kg

DRUGS (6)
  1. STELARA [Suspect]
     Indication: PSORIASIS
     Route: 058
     Dates: start: 20111104
  2. STELARA [Suspect]
     Indication: PSORIASIS
     Route: 058
     Dates: start: 20110616
  3. AZUNOL [Concomitant]
     Indication: PSORIASIS
     Route: 048
     Dates: start: 20120715
  4. ALESION [Concomitant]
     Route: 048
  5. LIDOMEX [Concomitant]
     Route: 061
  6. OXAROL [Concomitant]
     Route: 061

REACTIONS (1)
  - Pyrexia [Recovering/Resolving]
